FAERS Safety Report 4425578-3 (Version None)
Quarter: 2004Q3

REPORT INFORMATION
  Report Type: 
  Country: None (occurrence: None)
  Receive Date: 20040810
  Receipt Date: 20040802
  Transmission Date: 20050211
  Serious: Yes (Other)
  Sender: FDA-Public Use
  Company Number: 200413792BCC

PATIENT
  Age: 52 Year
  Sex: Female
  Weight: 64.4108 kg

DRUGS (2)
  1. ALEVE [Suspect]
     Dosage: SEE IMAGE
     Route: 048
     Dates: start: 20040601
  2. ALEVE [Suspect]
     Dosage: SEE IMAGE
     Route: 048
     Dates: start: 20040731

REACTIONS (6)
  - ABDOMINAL PAIN UPPER [None]
  - EPISTAXIS [None]
  - FACE INJURY [None]
  - FALL [None]
  - NAUSEA [None]
  - SYNCOPE [None]
